FAERS Safety Report 17362912 (Version 20)
Quarter: 2021Q2

REPORT INFORMATION
  Report Type: Spontaneous
  Country: KR (occurrence: KR)
  Receive Date: 20200203
  Receipt Date: 20210609
  Transmission Date: 20210716
  Serious: Yes (Hospitalization, Other)
  Sender: FDA-Public Use
  Company Number: KR-ALEXION PHARMACEUTICALS INC.-A202001066

PATIENT
  Age: 56 Year
  Sex: Female

DRUGS (3)
  1. SOLIRIS [Suspect]
     Active Substance: ECULIZUMAB
     Dosage: 1200 MG, Q2W
     Route: 042
     Dates: start: 20200213
  2. SOLIRIS [Suspect]
     Active Substance: ECULIZUMAB
     Dosage: 900 MG, UNK
     Route: 010
     Dates: start: 20200709
  3. SOLIRIS [Suspect]
     Active Substance: ECULIZUMAB
     Indication: ATYPICAL HAEMOLYTIC URAEMIC SYNDROME
     Dosage: 900 MG, QW
     Route: 042
     Dates: start: 20200117, end: 20200207

REACTIONS (13)
  - Seizure [Unknown]
  - Platelet count decreased [Not Recovered/Not Resolved]
  - Cardiac hypertrophy [Recovered/Resolved]
  - Schistocytosis [Recovered/Resolved]
  - Hypertension [Recovered/Resolved]
  - Oedema [Recovered/Resolved]
  - Haematology test abnormal [Recovered/Resolved]
  - Thrombotic microangiopathy [Unknown]
  - Renal impairment [Recovered/Resolved]
  - Syncope [Not Recovered/Not Resolved]
  - Arteriovenous fistula operation [Recovered/Resolved]
  - Drug ineffective [Recovered/Resolved]
  - Immune thrombocytopenia [Not Recovered/Not Resolved]

NARRATIVE: CASE EVENT DATE: 2020
